FAERS Safety Report 18523544 (Version 1)
Quarter: 2020Q4

REPORT INFORMATION
  Report Type: Spontaneous
  Country: US (occurrence: US)
  Receive Date: 20201119
  Receipt Date: 20201119
  Transmission Date: 20210114
  Serious: Yes (Death, Other)
  Sender: FDA-Public Use
  Company Number: US-PURDUE-USA-2020-0164738

PATIENT
  Age: 92 Year
  Sex: Male

DRUGS (1)
  1. OXYCONTIN [Suspect]
     Active Substance: OXYCODONE HYDROCHLORIDE
     Indication: PRODUCT USED FOR UNKNOWN INDICATION
     Route: 048

REACTIONS (10)
  - Feeding disorder [Unknown]
  - Dementia [Unknown]
  - Hypersomnia [Unknown]
  - Respiratory failure [Fatal]
  - Cerebrovascular accident [Unknown]
  - Medication error [Unknown]
  - Chronic obstructive pulmonary disease [Fatal]
  - Memory impairment [Unknown]
  - Small cell lung cancer [Fatal]
  - Aphasia [Unknown]

NARRATIVE: CASE EVENT DATE: 20180401
